FAERS Safety Report 11401735 (Version 1)
Quarter: 2015Q3

REPORT INFORMATION
  Report Type: Spontaneous
  Country: CA (occurrence: CA)
  Receive Date: 20150821
  Receipt Date: 20150821
  Transmission Date: 20151125
  Serious: Yes (Life-Threatening)
  Sender: FDA-Public Use
  Company Number: CA-ROCHE-1623066

PATIENT
  Age: 79 Year
  Sex: Female
  Weight: 66 kg

DRUGS (16)
  1. FUROSEMIDE. [Concomitant]
     Active Substance: FUROSEMIDE
  2. RAMIPRIL. [Concomitant]
     Active Substance: RAMIPRIL
  3. TAMIFLU [Suspect]
     Active Substance: OSELTAMIVIR PHOSPHATE
     Indication: ANTIVIRAL PROPHYLAXIS
     Dosage: THERAPY DURATION: 14 DAYS
     Route: 065
  4. DIAMICRON [Concomitant]
     Active Substance: GLICLAZIDE
  5. EFFEXOR XR [Concomitant]
     Active Substance: VENLAFAXINE HYDROCHLORIDE
     Route: 065
  6. SYNTHROID [Concomitant]
     Active Substance: LEVOTHYROXINE SODIUM
  7. TYLENOL [Concomitant]
     Active Substance: ACETAMINOPHEN
  8. DILAUDID [Concomitant]
     Active Substance: HYDROMORPHONE HYDROCHLORIDE
  9. PRAMIPEXOLE. [Concomitant]
     Active Substance: PRAMIPEXOLE
  10. CLONAZEPAM. [Concomitant]
     Active Substance: CLONAZEPAM
     Route: 065
  11. VENTOLIN [Concomitant]
     Active Substance: ALBUTEROL SULFATE
  12. ASPIRIN. [Concomitant]
     Active Substance: ASPIRIN
  13. DILTIAZEM [Concomitant]
     Active Substance: DILTIAZEM
  14. TENORMIN [Concomitant]
     Active Substance: ATENOLOL
  15. COUMADIN [Concomitant]
     Active Substance: WARFARIN SODIUM
  16. TRAZODONE [Concomitant]
     Active Substance: TRAZODONE HYDROCHLORIDE

REACTIONS (4)
  - Tachyarrhythmia [Unknown]
  - Atrial fibrillation [Unknown]
  - Anaphylactic reaction [Unknown]
  - Cardiopulmonary failure [Unknown]
